FAERS Safety Report 17518013 (Version 2)
Quarter: 2020Q4

REPORT INFORMATION
  Report Type: Report from Study
  Country: ES (occurrence: ES)
  Receive Date: 20200309
  Receipt Date: 20201021
  Transmission Date: 20210113
  Serious: No
  Sender: FDA-Public Use
  Company Number: ES-BAYER-2020-038810

PATIENT
  Age: 41 Year
  Sex: Female

DRUGS (1)
  1. MIRENA [Suspect]
     Active Substance: LEVONORGESTREL
     Indication: MENORRHAGIA
     Dosage: 20 ?G PER DAY, CONT
     Route: 015
     Dates: start: 20190205, end: 20190205

REACTIONS (4)
  - Complication of device insertion [None]
  - Device difficult to use [None]
  - Uterine cervix stenosis [None]
  - Presyncope [None]

NARRATIVE: CASE EVENT DATE: 20200205
